FAERS Safety Report 4588065-8 (Version None)
Quarter: 2005Q1

REPORT INFORMATION
  Report Type: 
  Country: None (occurrence: None)
  Receive Date: 20050216
  Receipt Date: 20050131
  Transmission Date: 20050727
  Serious: Yes (Other)
  Sender: FDA-Public Use
  Company Number: AU_050108330

PATIENT
  Age: 7 Year
  Sex: Female

DRUGS (1)
  1. STRATTERA [Suspect]
     Indication: ATTENTION DEFICIT/HYPERACTIVITY DISORDER
     Dosage: 10 MG

REACTIONS (5)
  - AGITATION [None]
  - ATTENTION-SEEKING BEHAVIOUR [None]
  - DRUG INEFFECTIVE [None]
  - MOOD SWINGS [None]
  - SUICIDE ATTEMPT [None]
